FAERS Safety Report 20143808 (Version 2)
Quarter: 2021Q4

REPORT INFORMATION
  Report Type: Spontaneous
  Country: US (occurrence: None)
  Receive Date: 20211203
  Receipt Date: 20211224
  Transmission Date: 20220304
  Serious: Yes (Other)
  Sender: FDA-Public Use
  Company Number: US-Hikma Pharmaceuticals USA Inc.-US-H14001-21-05188

PATIENT
  Sex: Male

DRUGS (4)
  1. ADRIAMYCIN [Suspect]
     Active Substance: DOXORUBICIN HYDROCHLORIDE
     Indication: Product used for unknown indication
     Dosage: UNKNOWN
  2. DACARBAZINE [Suspect]
     Active Substance: DACARBAZINE
     Indication: Product used for unknown indication
     Dosage: UNKNOWN
     Route: 065
  3. VINBLASTINE [Suspect]
     Active Substance: VINBLASTINE
     Indication: Product used for unknown indication
     Dosage: UNKNOWN
  4. BLEOMYCIN SULFATE [Suspect]
     Active Substance: BLEOMYCIN SULFATE
     Indication: Product used for unknown indication
     Dosage: UNKNOWN

REACTIONS (1)
  - Neuropathy peripheral [Unknown]
